FAERS Safety Report 9134766 (Version 1)
Quarter: 2013Q1

REPORT INFORMATION
  Report Type: Spontaneous
  Country: US (occurrence: US)
  Receive Date: 20130304
  Receipt Date: 20130304
  Transmission Date: 20140127
  Serious: No
  Sender: FDA-Public Use
  Company Number: US-PFIZER INC-2013073212

PATIENT
  Age: 61 Year
  Sex: Female
  Weight: 70.75 kg

DRUGS (5)
  1. CHANTIX [Suspect]
     Indication: SMOKING CESSATION THERAPY
     Dosage: 0.5 MG, DAILY
     Route: 048
     Dates: start: 2013, end: 2013
  2. CHANTIX [Suspect]
     Dosage: UNK
     Route: 048
     Dates: start: 20130221
  3. CLARITHROMYCIN [Suspect]
     Indication: HELICOBACTER INFECTION
     Dosage: UNK, 2X/DAY
     Dates: start: 2013, end: 201302
  4. ERYTHROMYCIN [Suspect]
     Indication: HELICOBACTER INFECTION
     Dosage: UNK, 2X/DAY
     Dates: start: 2013, end: 2013
  5. LEVOFLOXACIN [Suspect]
     Indication: HELICOBACTER INFECTION
     Dosage: UNK, SINGLE
     Dates: start: 2013, end: 201302

REACTIONS (2)
  - Dysgeusia [Recovered/Resolved]
  - Drug ineffective [Unknown]
